FAERS Safety Report 4264033-0 (Version None)
Quarter: 2004Q1

REPORT INFORMATION
  Report Type: 
  Country: None (occurrence: None)
  Receive Date: 20040102
  Receipt Date: 20031217
  Transmission Date: 20041129
  Serious: Yes (Hospitalization)
  Sender: FDA-Public Use
  Company Number: 184385

PATIENT
  Age: 41 Year
  Sex: Female

DRUGS (3)
  1. AVONEX [Suspect]
     Indication: MULTIPLE SCLEROSIS
     Dosage: 30 MCG QW IM
     Route: 030
     Dates: start: 19970101
  2. ELAVIL [Concomitant]
  3. ZOLOFT [Concomitant]

REACTIONS (4)
  - DEPRESSION [None]
  - MENTAL DISORDER [None]
  - STRESS SYMPTOMS [None]
  - SUICIDAL IDEATION [None]
